FAERS Safety Report 13309875 (Version 1)
Quarter: 2017Q1

REPORT INFORMATION
  Report Type: Spontaneous
  Country: US (occurrence: US)
  Receive Date: 20170308
  Receipt Date: 20170308
  Transmission Date: 20170428
  Serious: No
  Sender: FDA-Public Use
  Company Number: None

PATIENT
  Age: 54 Year
  Sex: Female

DRUGS (1)
  1. HUMIRA [Suspect]
     Active Substance: ADALIMUMAB
     Indication: CROHN^S DISEASE
     Dosage: EVERY 14 DAYS
     Route: 058
     Dates: start: 20150923

REACTIONS (3)
  - Neuropathy peripheral [None]
  - Musculoskeletal pain [None]
  - Pain in extremity [None]

NARRATIVE: CASE EVENT DATE: 20170101
